FAERS Safety Report 6656652-9 (Version None)
Quarter: 2010Q1

REPORT INFORMATION
  Report Type: 
  Country: None (occurrence: None)
  Receive Date: 20100329
  Receipt Date: 20100315
  Transmission Date: 20100710
  Serious: Yes (Hospitalization)
  Sender: FDA-Public Use
  Company Number: BG-TYCO HEALTHCARE/MALLINCKRODT-T201000829

PATIENT
  Age: 62 Year
  Sex: Male

DRUGS (10)
  1. MORPHINE [Suspect]
     Indication: PAIN
     Dosage: 15 MG
     Route: 058
  2. MORPHINE [Suspect]
     Dosage: 20 MG
     Route: 058
  3. MORPHINE [Suspect]
     Dosage: 120 MG/ 24 H (6 X 20 MG SC) + 20 MG SC
     Route: 058
  4. DOLTARD [Suspect]
     Indication: PAIN
     Dosage: 270 MG/ 24 H (3 X 90 MG)
     Route: 048
  5. DOLTARD [Suspect]
     Dosage: 360 MG/ 24 H (3 X 120 MG)
  6. CARBAMAZEPINE [Concomitant]
     Indication: EPILEPSY
     Dosage: 800 MG / 24 H (200 + 200 + 400 MG)
  7. SENNA-MINT WAF [Concomitant]
     Indication: LAXATIVE SUPPORTIVE CARE
     Dosage: 3 TABS
  8. LACTULOSE [Concomitant]
     Dosage: 30 ML
  9. METRONIDAZOLE [Concomitant]
     Indication: WOUND TREATMENT
     Dosage: UNK
  10. AMITRIPTYLINE [Concomitant]
     Indication: PAIN
     Dosage: 25 MG/ 24 H BEFORE BEDTIME

REACTIONS (2)
  - HYPERAESTHESIA [None]
  - INCORRECT ROUTE OF DRUG ADMINISTRATION [None]
